FAERS Safety Report 9049037 (Version 1)
Quarter: 2013Q1

REPORT INFORMATION
  Report Type: Spontaneous
  Country: US (occurrence: None)
  Receive Date: 20130129
  Receipt Date: 20130129
  Transmission Date: 20140127
  Serious: Yes (Other)
  Sender: FDA-Public Use
  Company Number: None

PATIENT
  Age: 61 Year
  Sex: Female
  Weight: 68.04 kg

DRUGS (1)
  1. ESCITALOPRAM 5 MG DAILY [Suspect]
     Indication: GENERALISED ANXIETY DISORDER
     Route: 048
     Dates: start: 201203

REACTIONS (4)
  - Product substitution issue [None]
  - Dizziness [None]
  - Depressed mood [None]
  - Irritability [None]
